FAERS Safety Report 13873559 (Version 1)
Quarter: 2017Q3

REPORT INFORMATION
  Report Type: Spontaneous
  Country: US (occurrence: US)
  Receive Date: 20170816
  Receipt Date: 20170816
  Transmission Date: 20171127
  Serious: No
  Sender: FDA-Public Use
  Company Number: PHEH2017US024799

PATIENT
  Sex: Female

DRUGS (1)
  1. ENOXAPARIN SODIUM. [Suspect]
     Active Substance: ENOXAPARIN SODIUM
     Indication: POST PROCEDURAL HAEMORRHAGE
     Dosage: UNK
     Route: 065
     Dates: start: 20170718

REACTIONS (2)
  - Injection site pain [Unknown]
  - Injection site bruising [Unknown]
